FAERS Safety Report 7625967-X (Version None)
Quarter: 2011Q3

REPORT INFORMATION
  Report Type: 
  Country: None (occurrence: None)
  Receive Date: 20110713
  Receipt Date: 20110711
  Transmission Date: 20111222
  Serious: Yes (Death, Other)
  Sender: FDA-Public Use
  Company Number: 2010SP063490

PATIENT
  Age: 59 Year
  Sex: Female

DRUGS (4)
  1. DEPAKENE [Concomitant]
  2. REMERON [Suspect]
     Indication: MAJOR DEPRESSION
     Dosage: 15 MG;QD;PO ; 45 MG;QD;PO ; 30 MG;QD;PO
     Route: 048
     Dates: start: 20091014, end: 20091201
  3. REMERON [Suspect]
     Indication: MAJOR DEPRESSION
     Dosage: 15 MG;QD;PO ; 45 MG;QD;PO ; 30 MG;QD;PO
     Route: 048
     Dates: start: 20091201
  4. REMERON [Suspect]
     Indication: MAJOR DEPRESSION
     Dosage: 15 MG;QD;PO ; 45 MG;QD;PO ; 30 MG;QD;PO
     Route: 048
     Dates: start: 20100804, end: 20101125

REACTIONS (3)
  - ASTHENIA [None]
  - FACE OEDEMA [None]
  - FATIGUE [None]
